FAERS Safety Report 4933023-4 (Version None)
Quarter: 2006Q1

REPORT INFORMATION
  Report Type: 
  Country: None (occurrence: None)
  Receive Date: 20060301
  Receipt Date: 20060217
  Transmission Date: 20060701
  Serious: Yes (Other)
  Sender: FDA-Public Use
  Company Number: 2006024990

PATIENT
  Age: 61 Year
  Sex: Female
  Weight: 83.9154 kg

DRUGS (2)
  1. LIPITOR [Suspect]
     Indication: BLOOD CHOLESTEROL INCREASED
     Dosage: 10 M (10 MG, 1 IN 1 D), ORAL
     Route: 048
     Dates: start: 20020101
  2. ATENOLOL [Concomitant]

REACTIONS (8)
  - ARTHROPATHY [None]
  - ASTHENIA [None]
  - BONE DISORDER [None]
  - CHONDROPATHY [None]
  - JOINT SWELLING [None]
  - MOVEMENT DISORDER [None]
  - TREMOR [None]
  - WEIGHT INCREASED [None]
